FAERS Safety Report 5086346-5 (Version None)
Quarter: 2006Q3

REPORT INFORMATION
  Report Type: 
  Country: None (occurrence: None)
  Receive Date: 20060821
  Receipt Date: 20060821
  Transmission Date: 20061208
  Serious: No
  Sender: FDA-Public Use
  Company Number: None

PATIENT

DRUGS (3)
  1. VITAMIN E [Suspect]
     Dosage: CAPSULE
  2. SOTALOL HYDROCHLORIDE [Concomitant]
  3. AMBIEN [Concomitant]

REACTIONS (2)
  - INTERCEPTED MEDICATION ERROR [None]
  - MEDICATION ERROR [None]
